FAERS Safety Report 23057325 (Version 2)
Quarter: 2023Q4

REPORT INFORMATION
  Report Type: Other
  Country: US (occurrence: None)
  Receive Date: 20231012
  Receipt Date: 20231013
  Transmission Date: 20240110
  Serious: Yes (Life-Threatening, Hospitalization)
  Sender: FDA-Public Use
  Company Number: US-ROCHE-3435971

PATIENT
  Age: 42 Year
  Sex: Female

DRUGS (1)
  1. RITUXIMAB [Suspect]
     Active Substance: RITUXIMAB
     Indication: Rheumatoid arthritis
     Route: 065

REACTIONS (7)
  - Hyperammonaemia [Recovered/Resolved]
  - Sepsis [Unknown]
  - Abdominal abscess [Unknown]
  - Seizure [Recovered/Resolved]
  - Klebsiella urinary tract infection [Unknown]
  - Enterovesical fistula [Not Recovered/Not Resolved]
  - Encephalopathy [Recovered/Resolved]
